FAERS Safety Report 17225428 (Version 1)
Quarter: 2020Q1

REPORT INFORMATION
  Report Type: Spontaneous
  Country: NL (occurrence: PT)
  Receive Date: 20200102
  Receipt Date: 20200102
  Transmission Date: 20200409
  Serious: Yes (Other)
  Sender: FDA-Public Use
  Company Number: PT-FRESENIUS KABI-FK201914696

PATIENT
  Sex: Female

DRUGS (3)
  1. ONDANSETRON (MANUFACTURER UNKNOWN) [Suspect]
     Active Substance: ONDANSETRON
     Indication: PRODUCT USED FOR UNKNOWN INDICATION
     Route: 065
  2. SUGAMMADEX SODIUM [Suspect]
     Active Substance: SUGAMMADEX SODIUM
     Indication: PRODUCT USED FOR UNKNOWN INDICATION
     Dosage: ANOTHER AMPUOLE
     Route: 065
  3. SUGAMMADEX SODIUM [Suspect]
     Active Substance: SUGAMMADEX SODIUM
     Dosage: 200 MILLIGRAM
     Route: 065

REACTIONS (4)
  - Hypotension [Recovered/Resolved]
  - Feeling abnormal [Recovered/Resolved]
  - Rash [Recovered/Resolved]
  - Bronchospasm [Recovered/Resolved]
